FAERS Safety Report 20066773 (Version 1)
Quarter: 2021Q4

REPORT INFORMATION
  Report Type: Spontaneous
  Country: US (occurrence: US)
  Receive Date: 20211115
  Receipt Date: 20211115
  Transmission Date: 20220303
  Serious: No
  Sender: FDA-Public Use
  Company Number: US-BIOVITRUM-2021US10526

PATIENT
  Sex: Male
  Weight: 10 kg

DRUGS (7)
  1. SYNAGIS [Suspect]
     Active Substance: PALIVIZUMAB
     Indication: Premature baby
     Route: 030
     Dates: start: 202011
  2. EPINEPHRINE [Concomitant]
     Active Substance: EPINEPHRINE
  3. SODIUM CHLORIDE 0.9 % CARTRIDGE [Concomitant]
  4. PEPCID [Concomitant]
     Active Substance: FAMOTIDINE
  5. ALBUTEROL SULFATE [Concomitant]
     Active Substance: ALBUTEROL SULFATE
  6. SYNAGIS [Suspect]
     Active Substance: PALIVIZUMAB
     Indication: Respiratory tract malformation
  7. SODIUM CHLORIDE [Concomitant]
     Active Substance: SODIUM CHLORIDE

REACTIONS (2)
  - Illness [Unknown]
  - Product dose omission issue [Unknown]
